FAERS Safety Report 20511099 (Version 1)
Quarter: 2022Q1

REPORT INFORMATION
  Report Type: Spontaneous
  Country: GB (occurrence: GB)
  Receive Date: 20220224
  Receipt Date: 20220224
  Transmission Date: 20220423
  Serious: Yes (Other)
  Sender: FDA-Public Use
  Company Number: None

PATIENT
  Age: 66 Year
  Sex: Female

DRUGS (1)
  1. ATORVASTATIN [Suspect]
     Active Substance: ATORVASTATIN
     Indication: Blood cholesterol increased
     Dosage: 20 MG, QD (AT NIGHT)
     Route: 065
     Dates: start: 20220202, end: 20220215

REACTIONS (2)
  - Oral blood blister [Not Recovered/Not Resolved]
  - Oropharyngeal blistering [Unknown]
